FAERS Safety Report 7738822-1 (Version None)
Quarter: 2011Q3

REPORT INFORMATION
  Report Type: 
  Country: None (occurrence: None)
  Receive Date: 20110909
  Receipt Date: 20110829
  Transmission Date: 20111222
  Serious: Yes (Death, Hospitalization, Other)
  Sender: FDA-Public Use
  Company Number: CA-AMGEN-CANSP2011045119

PATIENT
  Age: 8 Year
  Sex: Female
  Weight: 21 kg

DRUGS (4)
  1. PREDNISONE [Concomitant]
     Dosage: 5 MG, 1X/DAY
  2. OMEPRAZOLE [Concomitant]
     Dosage: 10 MG, 2X/DAY
  3. INDOMETHACIN [Concomitant]
     Dosage: 100 MG, 2X/DAY
  4. ENBREL [Suspect]
     Indication: JUVENILE ARTHRITIS
     Dosage: 0.4MG/KG TWICE A WEEK

REACTIONS (5)
  - PURPURA FULMINANS [None]
  - RENAL FAILURE [None]
  - DISSEMINATED INTRAVASCULAR COAGULATION [None]
  - STREPTOCOCCAL INFECTION [None]
  - HAEMORRHAGE INTRACRANIAL [None]
